FAERS Safety Report 26063193 (Version 1)
Quarter: 2025Q4

REPORT INFORMATION
  Report Type: Spontaneous
  Country: CA (occurrence: None)
  Receive Date: 20251119
  Receipt Date: 20251119
  Transmission Date: 20260117
  Serious: Yes (Other)
  Sender: ORGANON
  Company Number: CA-ORGANON-O2511CAN001290

PATIENT
  Age: 15 Year

DRUGS (1)
  1. NEXPLANON [Suspect]
     Active Substance: ETONOGESTREL
     Dosage: 1 IMPLANT

REACTIONS (4)
  - Suicidal ideation [Unknown]
  - Complication of device removal [Recovered/Resolved]
  - Product use issue [Unknown]
  - Product prescribing issue [Unknown]
